FAERS Safety Report 7179416-9 (Version None)
Quarter: 2010Q4

REPORT INFORMATION
  Report Type: 
  Country: None (occurrence: None)
  Receive Date: 20101221
  Receipt Date: 20101212
  Transmission Date: 20110411
  Serious: Yes (Life-Threatening, Other)
  Sender: FDA-Public Use
  Company Number: JO-ASTRAZENECA-2010SE58965

PATIENT
  Age: 64 Year
  Sex: Male
  Weight: 85 kg

DRUGS (9)
  1. CRESTOR [Suspect]
     Indication: MYOCARDIAL ISCHAEMIA
     Route: 048
     Dates: start: 20101025, end: 20101129
  2. LIPITOR [Suspect]
     Indication: MYOCARDIAL ISCHAEMIA
     Route: 048
     Dates: start: 20100928, end: 20101014
  3. TRITACE COMP [Concomitant]
  4. DIMITON [Concomitant]
  5. RATIDIN [Concomitant]
  6. ASPIRIN [Concomitant]
     Route: 048
  7. NITRATE [Concomitant]
     Route: 048
  8. ENALAPRIL [Concomitant]
     Route: 048
  9. ATENOLOL [Concomitant]
     Route: 048

REACTIONS (4)
  - ATAXIA [None]
  - MYOPATHY [None]
  - OEDEMA PERIPHERAL [None]
  - RHABDOMYOLYSIS [None]
